FAERS Safety Report 5725802-0 (Version None)
Quarter: 2008Q2

REPORT INFORMATION
  Report Type: 
  Country: None (occurrence: None)
  Receive Date: 20080429
  Receipt Date: 20080416
  Transmission Date: 20081010
  Serious: Yes (Hospitalization)
  Sender: FDA-Public Use
  Company Number: 2008BI010088

PATIENT
  Age: 52 Year
  Sex: Female
  Weight: 45.3597 kg

DRUGS (2)
  1. AVONEX [Suspect]
     Indication: MULTIPLE SCLEROSIS
     Dosage: 30 UG;QW;IM
     Route: 030
     Dates: start: 20071201, end: 20080229
  2. DEPAKOTE [Concomitant]

REACTIONS (4)
  - CONVULSION [None]
  - DYSPNOEA [None]
  - HEMIPLEGIA [None]
  - MYOCARDIAL INFARCTION [None]
